FAERS Safety Report 16872448 (Version 3)
Quarter: 2020Q1

REPORT INFORMATION
  Report Type: Report from Study
  Country: None (occurrence: CO)
  Receive Date: 20191001
  Receipt Date: 20200113
  Transmission Date: 20200409
  Serious: Yes (Other)
  Sender: FDA-Public Use
  Company Number: CO-ABBVIE-19K-036-2770095-00

PATIENT
  Age: 29 Year
  Sex: Female

DRUGS (1)
  1. HUMIRA [Suspect]
     Active Substance: ADALIMUMAB
     Indication: ANKYLOSING SPONDYLITIS
     Route: 058
     Dates: start: 20190315, end: 20190415

REACTIONS (8)
  - Dyspareunia [Unknown]
  - Papilloma viral infection [Not Recovered/Not Resolved]
  - Skin lesion [Unknown]
  - Diarrhoea [Recovering/Resolving]
  - Vaginal infection [Recovering/Resolving]
  - Biopsy uterus abnormal [Recovering/Resolving]
  - Ear injury [Recovering/Resolving]
  - Purulence [Unknown]

NARRATIVE: CASE EVENT DATE: 2019
